FAERS Safety Report 15478972 (Version 1)
Quarter: 2018Q4

REPORT INFORMATION
  Report Type: Spontaneous
  Country: US (occurrence: US)
  Receive Date: 20181009
  Receipt Date: 20181009
  Transmission Date: 20190205
  Serious: Yes (Other)
  Sender: FDA-Public Use
  Company Number: US-ELI_LILLY_AND_COMPANY-US201810002706

PATIENT
  Age: 51 Year
  Sex: Female

DRUGS (1)
  1. HUMULIN R U-500 [Suspect]
     Active Substance: INSULIN HUMAN
     Indication: PRODUCT USED FOR UNKNOWN INDICATION
     Dosage: 150 U, TID (SLIDING SCALE)
     Route: 065
     Dates: start: 2014

REACTIONS (3)
  - Intervertebral disc degeneration [Unknown]
  - Peroneal nerve palsy [Unknown]
  - Monoplegia [Unknown]

NARRATIVE: CASE EVENT DATE: 20180514
